FAERS Safety Report 6034931-6 (Version None)
Quarter: 2009Q1

REPORT INFORMATION
  Report Type: 
  Country: None (occurrence: None)
  Receive Date: 20090112
  Receipt Date: 20090107
  Transmission Date: 20090719
  Serious: Yes (Hospitalization, Disabling)
  Sender: FDA-Public Use
  Company Number: JP-AVENTIS-200813529JP

PATIENT
  Age: 82 Year
  Sex: Female
  Weight: 53.9 kg

DRUGS (11)
  1. DAONIL [Suspect]
     Indication: TYPE 2 DIABETES MELLITUS
     Route: 048
  2. DAONIL [Suspect]
     Dosage: DOSE: 1.25-2.5
     Route: 048
     Dates: end: 20080221
  3. VOGLIBOSE [Concomitant]
     Route: 048
  4. ASPIRIN [Concomitant]
     Indication: ANGINA PECTORIS
     Route: 048
  5. KALLIANT [Concomitant]
     Indication: ANGINA PECTORIS
     Route: 048
  6. HERBESSER [Concomitant]
     Indication: ANGINA PECTORIS
     Route: 048
  7. LASIX [Concomitant]
     Route: 048
  8. INOMARL [Concomitant]
     Route: 048
  9. AMISALIN [Concomitant]
     Route: 048
  10. KAITRON [Concomitant]
  11. PRAVAPEAK [Concomitant]
     Route: 048

REACTIONS (1)
  - HYPOGLYCAEMIC ENCEPHALOPATHY [None]
